FAERS Safety Report 24175154 (Version 1)
Quarter: 2024Q3

REPORT INFORMATION
  Report Type: Spontaneous
  Country: CA (occurrence: CA)
  Receive Date: 20240805
  Receipt Date: 20240805
  Transmission Date: 20241017
  Serious: Yes (Other)
  Sender: BRISTOL MYERS SQUIBB
  Company Number: CA-BRISTOL-MYERS SQUIBB COMPANY-2024-118041

PATIENT
  Age: 43 Year
  Sex: Female

DRUGS (146)
  1. TRIAMCINOLONE ACETONIDE [Suspect]
     Active Substance: TRIAMCINOLONE ACETONIDE
     Indication: Product used for unknown indication
     Dosage: 25 MG
  2. ACETAMINOPHEN [Concomitant]
     Active Substance: ACETAMINOPHEN
     Indication: Product used for unknown indication
  3. AIMOVIG [Concomitant]
     Active Substance: ERENUMAB-AOOE
     Indication: Migraine
  4. AIMOVIG [Concomitant]
     Active Substance: ERENUMAB-AOOE
  5. ATOMOXETINE HYDROCHLORIDE [Concomitant]
     Active Substance: ATOMOXETINE HYDROCHLORIDE
     Indication: Migraine
  6. ATOMOXETINE HYDROCHLORIDE [Concomitant]
     Active Substance: ATOMOXETINE HYDROCHLORIDE
  7. ATOMOXETINE HYDROCHLORIDE [Concomitant]
     Active Substance: ATOMOXETINE HYDROCHLORIDE
     Route: 005
  8. ATOMOXETINE HYDROCHLORIDE [Concomitant]
     Active Substance: ATOMOXETINE HYDROCHLORIDE
     Route: 005
  9. ATOMOXETINE HYDROCHLORIDE [Concomitant]
     Active Substance: ATOMOXETINE HYDROCHLORIDE
  10. ATOMOXETINE HYDROCHLORIDE [Concomitant]
     Active Substance: ATOMOXETINE HYDROCHLORIDE
  11. ATOMOXETINE HYDROCHLORIDE [Concomitant]
     Active Substance: ATOMOXETINE HYDROCHLORIDE
  12. FLUTICASONE FUROATE [Concomitant]
     Active Substance: FLUTICASONE FUROATE
     Indication: Product used for unknown indication
  13. FLUTICASONE FUROATE [Concomitant]
     Active Substance: FLUTICASONE FUROATE
     Dosage: SPRAY, METERED DOSE
  14. AZELAIC ACID [Concomitant]
     Active Substance: AZELAIC ACID
     Indication: Product used for unknown indication
  15. AZELAIC ACID [Concomitant]
     Active Substance: AZELAIC ACID
     Route: 005
  16. BETAMETHASONE [Concomitant]
     Active Substance: BETAMETHASONE\BETAMETHASONE DIPROPIONATE
     Indication: Product used for unknown indication
  17. BETAMETHASONE [Concomitant]
     Active Substance: BETAMETHASONE\BETAMETHASONE DIPROPIONATE
  18. BETAMETHASONE [Concomitant]
     Active Substance: BETAMETHASONE\BETAMETHASONE DIPROPIONATE
  19. BETAMETHASONE VALERATE [Concomitant]
     Active Substance: BETAMETHASONE VALERATE
     Indication: Product used for unknown indication
  20. BETAMETHASONE VALERATE [Concomitant]
     Active Substance: BETAMETHASONE VALERATE
  21. BOTOX [Concomitant]
     Active Substance: ONABOTULINUMTOXINA
     Indication: Migraine
  22. BOTULINUM TOXIN TYPE A [Concomitant]
     Active Substance: BOTULINUM TOXIN TYPE A
     Indication: Migraine
  23. BOTULINUM TOXIN TYPE A [Concomitant]
     Active Substance: BOTULINUM TOXIN TYPE A
  24. BUPRENORPHINE HYDROCHLORIDE [Concomitant]
     Active Substance: BUPRENORPHINE HYDROCHLORIDE
     Indication: Product used for unknown indication
  25. BUTRANS [Concomitant]
     Active Substance: BUPRENORPHINE
     Indication: Product used for unknown indication
     Dosage: PATCH
  26. CALCIUM [Concomitant]
     Active Substance: CALCIUM
     Indication: Product used for unknown indication
  27. CALCIUM CARBONATE [Concomitant]
     Active Substance: CALCIUM CARBONATE
     Indication: Product used for unknown indication
  28. CALCIUM GLUCONATE [Concomitant]
     Active Substance: CALCIUM GLUCONATE
     Indication: Product used for unknown indication
  29. CALCIUM PANTOTHENATE [Concomitant]
     Active Substance: CALCIUM PANTOTHENATE
     Indication: Product used for unknown indication
  30. CALCIUM\CHOLECALCIFEROL\MAGNESIUM [Concomitant]
     Active Substance: CALCIUM\CHOLECALCIFEROL\MAGNESIUM
     Indication: Product used for unknown indication
  31. CANDESARTAN [Concomitant]
     Active Substance: CANDESARTAN
     Indication: Migraine
     Route: 048
  32. CETIRIZINE [Concomitant]
     Active Substance: CETIRIZINE HYDROCHLORIDE
     Indication: Product used for unknown indication
  33. CETIRIZINE [Concomitant]
     Active Substance: CETIRIZINE HYDROCHLORIDE
  34. CETIRIZINE [Concomitant]
     Active Substance: CETIRIZINE HYDROCHLORIDE
     Route: 048
  35. CETIRIZINE HYDROCHLORIDE [Concomitant]
     Active Substance: CETIRIZINE HYDROCHLORIDE
     Indication: Product used for unknown indication
  36. CETIRIZINE HYDROCHLORIDE [Concomitant]
     Active Substance: CETIRIZINE HYDROCHLORIDE
  37. CETIRIZINE HYDROCHLORIDE [Concomitant]
     Active Substance: CETIRIZINE HYDROCHLORIDE
     Route: 048
  38. CETIRIZINE HYDROCHLORIDE [Concomitant]
     Active Substance: CETIRIZINE HYDROCHLORIDE
  39. CETIRIZINE HYDROCHLORIDE [Concomitant]
     Active Substance: CETIRIZINE HYDROCHLORIDE
  40. CETIRIZINE HYDROCHLORIDE\PSEUDOEPHEDRINE HYDROCHLORIDE [Concomitant]
     Active Substance: CETIRIZINE HYDROCHLORIDE\PSEUDOEPHEDRINE HYDROCHLORIDE
     Indication: Product used for unknown indication
  41. TRICHOLINE CITRATE [Concomitant]
     Active Substance: TRICHOLINE CITRATE
     Indication: Product used for unknown indication
  42. CORTISONE [Concomitant]
     Active Substance: CORTISONE
     Indication: Product used for unknown indication
     Dosage: EVERY 12 HOURS
  43. CORTISONE [Concomitant]
     Active Substance: CORTISONE
  44. CORTISONE [Concomitant]
     Active Substance: CORTISONE
  45. CORTISONE [Concomitant]
     Active Substance: CORTISONE
  46. CORTISONE (HYDROCORTISONE) [Concomitant]
     Active Substance: HYDROCORTISONE
     Indication: Product used for unknown indication
  47. CORTISONE (HYDROCORTISONE) [Concomitant]
     Active Substance: HYDROCORTISONE
  48. CYANOCOBALAMIN [Concomitant]
     Active Substance: CYANOCOBALAMIN
     Indication: Product used for unknown indication
  49. CYANOCOBALAMIN [Concomitant]
     Active Substance: CYANOCOBALAMIN
     Route: 048
  50. CYCLOBENZAPRINE [Concomitant]
     Active Substance: CYCLOBENZAPRINE
     Indication: Product used for unknown indication
  51. CYCLOBENZAPRINE [Concomitant]
     Active Substance: CYCLOBENZAPRINE
  52. DESOXIMETASONE [Concomitant]
     Active Substance: DESOXIMETASONE
     Indication: Product used for unknown indication
  53. DESOXIMETASONE [Concomitant]
     Active Substance: DESOXIMETASONE
  54. DESOXIMETASONE [Concomitant]
     Active Substance: DESOXIMETASONE
     Dosage: EVERY 12 HOURS
  55. DESOXIMETASONE [Concomitant]
     Active Substance: DESOXIMETASONE
  56. DESOXIMETASONE [Concomitant]
     Active Substance: DESOXIMETASONE
  57. DESOXIMETASONE [Concomitant]
     Active Substance: DESOXIMETASONE
  58. DESOXIMETASONE [Concomitant]
     Active Substance: DESOXIMETASONE
  59. DESOXIMETASONE [Concomitant]
     Active Substance: DESOXIMETASONE
  60. DOMPERIDONE MALEATE [Concomitant]
     Active Substance: DOMPERIDONE MALEATE
     Indication: Product used for unknown indication
  61. DOMPERIDONE MALEATE [Concomitant]
     Active Substance: DOMPERIDONE MALEATE
  62. DOMPERIDONE MALEATE [Concomitant]
     Active Substance: DOMPERIDONE MALEATE
  63. DOMPERIDONE MALEATE [Concomitant]
     Active Substance: DOMPERIDONE MALEATE
  64. DOMPERIDONE MALEATE [Concomitant]
     Active Substance: DOMPERIDONE MALEATE
  65. DOMPERIDONE\PANTOPRAZOLE SODIUM [Concomitant]
     Active Substance: DOMPERIDONE\PANTOPRAZOLE SODIUM
     Indication: Product used for unknown indication
  66. DOMPERIDONE\PANTOPRAZOLE SODIUM [Concomitant]
     Active Substance: DOMPERIDONE\PANTOPRAZOLE SODIUM
  67. ERENUMAB [Concomitant]
     Active Substance: ERENUMAB
     Indication: Migraine
  68. ERENUMAB [Concomitant]
     Active Substance: ERENUMAB
  69. ERENUMAB [Concomitant]
     Active Substance: ERENUMAB
  70. ERENUMAB-AOOE [Concomitant]
     Active Substance: ERENUMAB-AOOE
     Indication: Migraine
  71. ERGOCALCIFEROL [Concomitant]
     Active Substance: ERGOCALCIFEROL
     Indication: Product used for unknown indication
  72. ERGOCALCIFEROL [Concomitant]
     Active Substance: ERGOCALCIFEROL
  73. FETZIMA [Concomitant]
     Active Substance: LEVOMILNACIPRAN HYDROCHLORIDE
     Indication: Product used for unknown indication
  74. FETZIMA [Concomitant]
     Active Substance: LEVOMILNACIPRAN HYDROCHLORIDE
  75. FINACEA [Concomitant]
     Active Substance: AZELAIC ACID
     Indication: Product used for unknown indication
     Route: 048
  76. FINACEA [Concomitant]
     Active Substance: AZELAIC ACID
  77. FLUTICASONE FUROATE [Concomitant]
     Active Substance: FLUTICASONE FUROATE
     Indication: Product used for unknown indication
  78. FOLIC ACID [Concomitant]
     Active Substance: FOLIC ACID
     Indication: Product used for unknown indication
  79. HYDROMORPHONE [Concomitant]
     Active Substance: HYDROMORPHONE
     Indication: Product used for unknown indication
  80. HYDROMORPHONE [Concomitant]
     Active Substance: HYDROMORPHONE
  81. HYDROMORPHONE [Concomitant]
     Active Substance: HYDROMORPHONE
  82. LAMICTAL [Concomitant]
     Active Substance: LAMOTRIGINE
     Indication: Product used for unknown indication
  83. LAMICTAL [Concomitant]
     Active Substance: LAMOTRIGINE
     Route: 048
  84. LAMICTAL [Concomitant]
     Active Substance: LAMOTRIGINE
     Route: 048
  85. LAMICTAL [Concomitant]
     Active Substance: LAMOTRIGINE
     Route: 048
  86. LAMICTAL [Concomitant]
     Active Substance: LAMOTRIGINE
     Dosage: EVERY 12 HOURS
  87. LAMICTAL [Concomitant]
     Active Substance: LAMOTRIGINE
     Route: 048
  88. LAMOTRIGINE [Concomitant]
     Active Substance: LAMOTRIGINE
     Indication: Product used for unknown indication
     Route: 048
  89. LAMOTRIGINE [Concomitant]
     Active Substance: LAMOTRIGINE
     Dosage: EVERY 12 HOURS
     Route: 048
  90. MAGNESIUM [Concomitant]
     Active Substance: MAGNESIUM
     Indication: Product used for unknown indication
  91. MAGNESIUM CARBONATE [Concomitant]
     Active Substance: MAGNESIUM CARBONATE
     Indication: Product used for unknown indication
  92. MILNACIPRAN HYDROCHLORIDE [Concomitant]
     Active Substance: MILNACIPRAN HYDROCHLORIDE
     Indication: Product used for unknown indication
  93. MILNACIPRAN HYDROCHLORIDE [Concomitant]
     Active Substance: MILNACIPRAN HYDROCHLORIDE
  94. MYRBETRIQ [Concomitant]
     Active Substance: MIRABEGRON
     Indication: Migraine
     Route: 048
  95. MYRBETRIQ [Concomitant]
     Active Substance: MIRABEGRON
     Route: 048
  96. MYRBETRIQ [Concomitant]
     Active Substance: MIRABEGRON
  97. NAPROXEN [Concomitant]
     Active Substance: NAPROXEN
     Indication: Product used for unknown indication
  98. NAPROXEN [Concomitant]
     Active Substance: NAPROXEN
     Dosage: EVERY 12 HOURS
     Route: 005
  99. NAPROXEN [Concomitant]
     Active Substance: NAPROXEN
  100. NAPROXEN [Concomitant]
     Active Substance: NAPROXEN
  101. NAPROXEN [Concomitant]
     Active Substance: NAPROXEN
     Dosage: EVERY 12 HOURS
  102. NAPROXEN [Concomitant]
     Active Substance: NAPROXEN
     Dosage: EVERY 12 HOURS
  103. NAPROXEN [Concomitant]
     Active Substance: NAPROXEN
     Route: 005
  104. PANTOPRAZOLE [Concomitant]
     Active Substance: PANTOPRAZOLE
     Indication: Product used for unknown indication
  105. PANTOPRAZOLE [Concomitant]
     Active Substance: PANTOPRAZOLE
  106. PANTOPRAZOLE [Concomitant]
     Active Substance: PANTOPRAZOLE
  107. PANTOPRAZOLE [Concomitant]
     Active Substance: PANTOPRAZOLE
     Route: 048
  108. PANTOPRAZOLE [Concomitant]
     Active Substance: PANTOPRAZOLE
  109. PANTOPRAZOLE [Concomitant]
     Active Substance: PANTOPRAZOLE
     Route: 048
  110. PANTOPRAZOLE [Concomitant]
     Active Substance: PANTOPRAZOLE
  111. PANTOPRAZOLE [Concomitant]
     Active Substance: PANTOPRAZOLE
  112. PANTOPRAZOLE [Concomitant]
     Active Substance: PANTOPRAZOLE
  113. PANTOPRAZOLE [Concomitant]
     Active Substance: PANTOPRAZOLE
     Dosage: EVERY 12 HOURS
  114. PANTOPRAZOLE [Concomitant]
     Active Substance: PANTOPRAZOLE
  115. PANTOPRAZOLE [Concomitant]
     Active Substance: PANTOPRAZOLE
  116. PANTOPRAZOLE [Concomitant]
     Active Substance: PANTOPRAZOLE
  117. PAROXETINE [Concomitant]
     Active Substance: PAROXETINE
     Indication: Product used for unknown indication
  118. PAROXETINE HYDROCHLORIDE [Concomitant]
     Active Substance: PAROXETINE HYDROCHLORIDE\PAROXETINE HYDROCHLORIDE ANHYDROUS
     Indication: Product used for unknown indication
  119. PHOSPHORUS [Concomitant]
     Active Substance: PHOSPHORUS
     Indication: Product used for unknown indication
  120. PREDNICARBATE [Concomitant]
     Active Substance: PREDNICARBATE
     Indication: Product used for unknown indication
  121. PSEUDOEPHEDRINE HYDROCHLORIDE [Concomitant]
     Active Substance: PSEUDOEPHEDRINE HYDROCHLORIDE
     Indication: Product used for unknown indication
  122. PSEUDOEPHEDRINE HYDROCHLORIDE [Concomitant]
     Active Substance: PSEUDOEPHEDRINE HYDROCHLORIDE
  123. PYRIDOXINE HYDROCHLORIDE [Concomitant]
     Active Substance: PYRIDOXINE HYDROCHLORIDE
     Indication: Product used for unknown indication
  124. RANITIDINE HYDROCHLORIDE [Concomitant]
     Active Substance: RANITIDINE HYDROCHLORIDE
     Indication: Product used for unknown indication
  125. CETIRIZINE HYDROCHLORIDE\PSEUDOEPHEDRINE HYDROCHLORIDE [Concomitant]
     Active Substance: CETIRIZINE HYDROCHLORIDE\PSEUDOEPHEDRINE HYDROCHLORIDE
     Indication: Product used for unknown indication
     Route: 048
  126. RIBOFLAVIN [Concomitant]
     Active Substance: RIBOFLAVIN
     Indication: Product used for unknown indication
  127. RIBOFLAVIN\THIAMINE HYDROCHLORIDE [Concomitant]
     Active Substance: RIBOFLAVIN\THIAMINE HYDROCHLORIDE
     Indication: Product used for unknown indication
  128. STRATTERA [Concomitant]
     Active Substance: ATOMOXETINE HYDROCHLORIDE
     Indication: Migraine
  129. THIAMINE HYDROCHLORIDE [Concomitant]
     Active Substance: THIAMINE HYDROCHLORIDE
     Indication: Product used for unknown indication
  130. TOPAMAX [Concomitant]
     Active Substance: TOPIRAMATE
     Indication: Product used for unknown indication
  131. TOPAMAX [Concomitant]
     Active Substance: TOPIRAMATE
  132. TOPIRAMATE [Concomitant]
     Active Substance: TOPIRAMATE
     Indication: Migraine
  133. TOPIRAMATE [Concomitant]
     Active Substance: TOPIRAMATE
  134. TOPIRAMATE [Concomitant]
     Active Substance: TOPIRAMATE
  135. TOPIRAMATE [Concomitant]
     Active Substance: TOPIRAMATE
  136. TOPIRAMATE [Concomitant]
     Active Substance: TOPIRAMATE
     Dosage: EVERY 12 HOURS
  137. TRAZODONE [Concomitant]
     Active Substance: TRAZODONE HYDROCHLORIDE
     Indication: Product used for unknown indication
  138. TRAZODONE [Concomitant]
     Active Substance: TRAZODONE HYDROCHLORIDE
  139. TRAZODONE [Concomitant]
     Active Substance: TRAZODONE HYDROCHLORIDE
  140. TRAZODONE [Concomitant]
     Active Substance: TRAZODONE HYDROCHLORIDE
  141. TRETINOIN [Concomitant]
     Active Substance: TRETINOIN
     Indication: Product used for unknown indication
  142. RETINOL [Concomitant]
     Active Substance: RETINOL
     Indication: Product used for unknown indication
  143. VITAMIN C [Concomitant]
     Active Substance: ASCORBIC ACID
     Indication: Product used for unknown indication
  144. VITAMIN D NOS [Concomitant]
     Active Substance: CHOLECALCIFEROL\ERGOCALCIFEROL
     Indication: Product used for unknown indication
  145. VITAMIN D3 [Concomitant]
     Active Substance: CHOLECALCIFEROL
     Indication: Product used for unknown indication
  146. VITAMIN D3 [Concomitant]
     Active Substance: CHOLECALCIFEROL

REACTIONS (13)
  - Abdominal pain upper [Unknown]
  - Blepharospasm [Unknown]
  - Drug ineffective [Unknown]
  - Drug intolerance [Unknown]
  - Epilepsy [Unknown]
  - Gastrooesophageal reflux disease [Unknown]
  - Hypoaesthesia [Unknown]
  - Memory impairment [Unknown]
  - Migraine [Unknown]
  - Pain [Unknown]
  - Paraesthesia [Unknown]
  - Taste disorder [Unknown]
  - Vomiting [Unknown]
